FAERS Safety Report 5961478-5 (Version None)
Quarter: 2008Q4

REPORT INFORMATION
  Report Type: 
  Country: None (occurrence: None)
  Receive Date: 20081121
  Receipt Date: 20081111
  Transmission Date: 20090506
  Serious: Yes (Life-Threatening)
  Sender: FDA-Public Use
  Company Number: SE-ELI_LILLY_AND_COMPANY-SE200811002248

PATIENT
  Sex: Female

DRUGS (2)
  1. FORTEO [Suspect]
     Indication: OSTEOPOROSIS
     Dosage: 20 UG, DAILY (1/D)
     Route: 065
     Dates: start: 20070308, end: 20081016
  2. LAMOTRIGINE [Concomitant]
     Indication: EPILEPSY
     Dosage: 20 MG, UNKNOWN
     Route: 065
     Dates: start: 20080602

REACTIONS (2)
  - EPILEPSY [None]
  - NEAR DROWNING [None]
